FAERS Safety Report 9248326 (Version 1)
Quarter: 2013Q2

REPORT INFORMATION
  Report Type: Spontaneous
  Country: US (occurrence: None)
  Receive Date: 20130419
  Receipt Date: 20130419
  Transmission Date: 20140414
  Serious: No
  Sender: FDA-Public Use
  Company Number: None

PATIENT
  Age: 53 Year
  Sex: Female
  Weight: 95.26 kg

DRUGS (1)
  1. ASACOL [Suspect]
     Indication: DIVERTICULITIS
     Dosage: 2 TABLETS, TID, PO
     Route: 048
     Dates: start: 20130220, end: 20130404

REACTIONS (4)
  - Urticaria [None]
  - Rash [None]
  - Pruritus [None]
  - Hepatic enzyme abnormal [None]
